FAERS Safety Report 6376185-7 (Version None)
Quarter: 2009Q3

REPORT INFORMATION
  Report Type: 
  Country: None (occurrence: None)
  Receive Date: 20090918
  Receipt Date: 20090907
  Transmission Date: 20100115
  Serious: Yes (Hospitalization)
  Sender: FDA-Public Use
  Company Number: GXKR2009JP08922

PATIENT
  Age: 26 Year
  Sex: Female
  Weight: 40 kg

DRUGS (4)
  1. ISONIAZID [Suspect]
     Indication: LYMPHADENITIS
  2. ISONIAZID [Suspect]
     Indication: PERITONEAL TUBERCULOSIS
  3. PREDNISOLONE [Suspect]
     Indication: LYMPHADENITIS
  4. PREDNISOLONE [Suspect]
     Indication: PERITONEAL TUBERCULOSIS

REACTIONS (9)
  - ANXIETY [None]
  - CLONIC CONVULSION [None]
  - DENTAL CARIES [None]
  - DRUG INEFFECTIVE [None]
  - LOSS OF CONSCIOUSNESS [None]
  - MONOPLEGIA [None]
  - SOMATOFORM DISORDER [None]
  - STRESS [None]
  - UNRESPONSIVE TO STIMULI [None]
